FAERS Safety Report 4840438-1 (Version None)
Quarter: 2005Q4

REPORT INFORMATION
  Report Type: 
  Country: None (occurrence: None)
  Receive Date: 20051128
  Receipt Date: 20051128
  Transmission Date: 20060501
  Serious: Yes (Other)
  Sender: FDA-Public Use
  Company Number: None

PATIENT
  Age: 66 Year
  Sex: Female
  Weight: 74.3899 kg

DRUGS (3)
  1. METRONIDAZOLE [Suspect]
     Indication: STAPHYLOCOCCAL INFECTION
     Dosage: 500 MG QID PO
     Route: 048
  2. LEVAQUIN [Concomitant]
  3. VANCOMYCIN [Concomitant]

REACTIONS (1)
  - PARAESTHESIA [None]
